FAERS Safety Report 8766651 (Version 2)
Quarter: 2012Q4

REPORT INFORMATION
  Report Type: 
  Country: IL (occurrence: IL)
  Receive Date: 20120904
  Receipt Date: 20120907
  Transmission Date: 20130627
  Serious: Yes (Other)
  Sender: FDA-Public Use
  Company Number: IL-JNJFOC-20120814624

PATIENT
  Age: 58 Year
  Sex: Female

DRUGS (2)
  1. REMICADE [Suspect]
     Indication: CROHN^S DISEASE
     Route: 042
     Dates: end: 201204
  2. REMICADE [Suspect]
     Indication: CROHN^S DISEASE
     Dosage: diluted in 500 cc bag
     Route: 042
     Dates: start: 201206

REACTIONS (1)
  - Haematoma [Unknown]
